FAERS Safety Report 16033952 (Version 2)
Quarter: 2019Q1

REPORT INFORMATION
  Report Type: Spontaneous
  Country: CA (occurrence: CA)
  Receive Date: 20190305
  Receipt Date: 20190306
  Transmission Date: 20190418
  Serious: Yes (Other)
  Sender: FDA-Public Use
  Company Number: PHHY2019CA045229

PATIENT
  Age: 67 Year
  Sex: Female

DRUGS (1)
  1. ACLASTA [Suspect]
     Active Substance: ZOLEDRONIC ACID
     Indication: OSTEOPOROSIS
     Dosage: UNK
     Route: 065

REACTIONS (18)
  - Dizziness [Unknown]
  - Nausea [Unknown]
  - Headache [Unknown]
  - Joint swelling [Unknown]
  - Loss of consciousness [Unknown]
  - Arthralgia [Unknown]
  - Joint stiffness [Unknown]
  - Malaise [Unknown]
  - Hypotension [Unknown]
  - Discomfort [Unknown]
  - Musculoskeletal pain [Unknown]
  - Fatigue [Unknown]
  - Pain in extremity [Unknown]
  - Pain [Unknown]
  - Myalgia [Unknown]
  - Asthenia [Unknown]
  - Vision blurred [Unknown]
  - Pain in jaw [Unknown]
